FAERS Safety Report 11935611 (Version 1)
Quarter: 2016Q1

REPORT INFORMATION
  Report Type: Spontaneous
  Country: US (occurrence: US)
  Receive Date: 20160121
  Receipt Date: 20160121
  Transmission Date: 20160526
  Serious: Yes (Other)
  Sender: FDA-Public Use
  Company Number: US-TEVA-571345USA

PATIENT

DRUGS (1)
  1. PROPOFOL. [Suspect]
     Active Substance: PROPOFOL
     Indication: SEDATION
     Dosage: 200MG/20ML
     Route: 042

REACTIONS (3)
  - Cough [Unknown]
  - Oxygen saturation decreased [Unknown]
  - Irregular breathing [Unknown]
